FAERS Safety Report 13716355 (Version 1)
Quarter: 2017Q3

REPORT INFORMATION
  Report Type: Spontaneous
  Country: US (occurrence: US)
  Receive Date: 20170703
  Receipt Date: 20170703
  Transmission Date: 20171127
  Serious: No
  Sender: FDA-Public Use
  Company Number: None

PATIENT
  Age: 75 Year
  Sex: Female

DRUGS (1)
  1. ALUNBRIG [Suspect]
     Active Substance: BRIGATINIB
     Dosage: TAPERING WENT UP TO 6 D QD ORAL
     Route: 048

REACTIONS (1)
  - Hypertension [None]

NARRATIVE: CASE EVENT DATE: 20170703
